FAERS Safety Report 12142347 (Version 1)
Quarter: 2016Q1

REPORT INFORMATION
  Report Type: Spontaneous
  Country: US (occurrence: US)
  Receive Date: 20160303
  Receipt Date: 20160303
  Transmission Date: 20160526
  Serious: Yes (Death, Other)
  Sender: FDA-Public Use
  Company Number: US-OTSUKA-2016_005247

PATIENT
  Sex: Male

DRUGS (1)
  1. SAMSCA [Suspect]
     Active Substance: TOLVAPTAN
     Indication: BLOOD SODIUM DECREASED
     Dosage: 60 MG, QD
     Route: 065

REACTIONS (4)
  - Death [Fatal]
  - Off label use [None]
  - Incorrect drug administration duration [Unknown]
  - Hepatotoxicity [Unknown]
